FAERS Safety Report 10207608 (Version 1)
Quarter: 2014Q2

REPORT INFORMATION
  Report Type: Spontaneous
  Country: DE (occurrence: DE)
  Receive Date: 20140530
  Receipt Date: 20140530
  Transmission Date: 20141212
  Serious: Yes (Death)
  Sender: FDA-Public Use
  Company Number: DE-ACTAVIS-2014-10961

PATIENT
  Age: 82 Year
  Sex: Male
  Weight: 53 kg

DRUGS (2)
  1. BICALUTAMIDE (UNKNOWN) [Suspect]
     Indication: PROSTATE CANCER METASTATIC
     Dosage: 150 MG, DAILY
     Route: 048
     Dates: start: 20140214, end: 20140403
  2. ELIGARD [Concomitant]
     Indication: PROSTATE CANCER METASTATIC
     Dosage: 1 DF, EVERY 3 MONTHS
     Route: 058
     Dates: end: 201402

REACTIONS (1)
  - Acute hepatic failure [Fatal]
